FAERS Safety Report 17392692 (Version 4)
Quarter: 2020Q1

REPORT INFORMATION
  Report Type: Spontaneous
  Country: IT (occurrence: IT)
  Receive Date: 20200207
  Receipt Date: 20200326
  Transmission Date: 20200409
  Serious: Yes (Hospitalization, Other)
  Sender: FDA-Public Use
  Company Number: IT-ROCHE-2543350

PATIENT
  Age: 82 Year
  Sex: Male
  Weight: 75 kg

DRUGS (1)
  1. HEMLIBRA [Suspect]
     Active Substance: EMICIZUMAB-KXWH
     Indication: FACTOR VIII DEFICIENCY
     Route: 058
     Dates: start: 20181120

REACTIONS (9)
  - Melaena [Unknown]
  - Hypovolaemic shock [Unknown]
  - Platelet count abnormal [Unknown]
  - Oesophagitis [Unknown]
  - Gastrooesophageal sphincter insufficiency [Unknown]
  - Hiatus hernia [Unknown]
  - Portal hypertensive gastropathy [Unknown]
  - Hepatic cirrhosis [Unknown]
  - Haemoglobin abnormal [Unknown]

NARRATIVE: CASE EVENT DATE: 20190624
